FAERS Safety Report 8884981 (Version 1)
Quarter: 2012Q4

REPORT INFORMATION
  Report Type: 
  Country: US (occurrence: US)
  Receive Date: 20121102
  Receipt Date: 20121102
  Transmission Date: 20130627
  Serious: No
  Sender: FDA-Public Use
  Company Number: US-ASTRAZENECA-2012SE80167

PATIENT
  Age: 61 Year
  Sex: Female

DRUGS (12)
  1. TENORETIC [Suspect]
     Dosage: 50/25 , HALF TABLET DAILY
     Route: 048
  2. LISINOPRIL [Suspect]
     Route: 048
  3. CRESTOR [Suspect]
     Route: 048
  4. CHANTIX [Concomitant]
  5. PROAIR HFA [Concomitant]
  6. ZOLOFT [Concomitant]
  7. MOBIC [Concomitant]
  8. SPIRIVA WITH HANDIHALER [Concomitant]
  9. ADVAIR DISKUS [Concomitant]
  10. GLUCOSAMINE COMPLEX [Concomitant]
  11. OMEGA 3-6-9 FATTY ACIDS [Concomitant]
  12. CITRACAL [Concomitant]

REACTIONS (3)
  - Anxiety [Unknown]
  - Essential hypertension [Unknown]
  - Chronic obstructive pulmonary disease [Unknown]
